FAERS Safety Report 5783024-1 (Version None)
Quarter: 2008Q2

REPORT INFORMATION
  Report Type: 
  Country: None (occurrence: None)
  Receive Date: 20080624
  Receipt Date: 20080613
  Transmission Date: 20081010
  Serious: Yes (Hospitalization)
  Sender: FDA-Public Use
  Company Number: SE-NOVOPROD-276543

PATIENT
  Sex: Male

DRUGS (1)
  1. INSULATARD FLEXPEN [Suspect]
     Indication: DRUG USE FOR UNKNOWN INDICATION

REACTIONS (3)
  - GINGIVAL PAIN [None]
  - PRURITUS [None]
  - SWOLLEN TONGUE [None]
